FAERS Safety Report 21359447 (Version 1)
Quarter: 2022Q3

REPORT INFORMATION
  Report Type: Spontaneous
  Country: GB (occurrence: GB)
  Receive Date: 20220921
  Receipt Date: 20220921
  Transmission Date: 20221027
  Serious: No
  Sender: FDA-Public Use
  Company Number: GB-BAXTER-2022BAX019974

PATIENT
  Sex: Male

DRUGS (1)
  1. SODIUM CHLORIDE [Suspect]
     Active Substance: SODIUM CHLORIDE
     Dosage: (DOSE NOT REPORTED, FREQUENCY: EVERYDAY)
     Route: 014

REACTIONS (2)
  - Cough [Unknown]
  - Treatment noncompliance [Unknown]
